FAERS Safety Report 17990927 (Version 2)
Quarter: 2020Q3

REPORT INFORMATION
  Report Type: Spontaneous
  Country: US (occurrence: US)
  Receive Date: 20200707
  Receipt Date: 20200729
  Transmission Date: 20201103
  Serious: Yes (Hospitalization, Other)
  Sender: FDA-Public Use
  Company Number: US-MYLANLABS-2020M1060773

PATIENT
  Age: 70 Year
  Sex: Female

DRUGS (25)
  1. CLOZAPINE MYLAN [Interacting]
     Active Substance: CLOZAPINE
     Dosage: 50 MILLIGRAM, BID
     Route: 048
  2. ZIPRASIDONE MYLAN [Interacting]
     Active Substance: ZIPRASIDONE
     Dosage: 40 MILLIGRAM, BID
     Route: 048
  3. RISPERIDONE MYLAN [Suspect]
     Active Substance: RISPERIDONE
     Dosage: CONTINUED FOR 3 WEEKS
     Route: 065
  4. DOCUSATE [Concomitant]
     Active Substance: DOCUSATE
     Indication: PRODUCT USED FOR UNKNOWN INDICATION
     Dosage: 200 MILLIGRAM, QD
     Route: 048
  5. RISPERIDONE MYLAN [Suspect]
     Active Substance: RISPERIDONE
     Dosage: LATER, TITRATED TO 4MG DAILY AND CONTINUED FOR 3 WEEKS
     Route: 065
  6. OLANZAPINE MYLAN [Suspect]
     Active Substance: OLANZAPINE
     Dosage: LATER, TITRATED TO DOSE OF 20MG DAILY
     Route: 065
  7. ATORVASTATIN [Concomitant]
     Active Substance: ATORVASTATIN
     Indication: HYPERTENSION
     Dosage: 40 MILLIGRAM, QD
     Route: 048
  8. DONEPEZIL. [Concomitant]
     Active Substance: DONEPEZIL
     Indication: SCHIZOAFFECTIVE DISORDER
     Dosage: 10 MILLIGRAM, QD
     Route: 048
  9. TRAZODONE [Concomitant]
     Active Substance: TRAZODONE HYDROCHLORIDE
     Indication: PRODUCT USED FOR UNKNOWN INDICATION
     Dosage: AS NEEDED AT BEDTIME
     Route: 048
  10. ACETAMINOPHEN. [Concomitant]
     Active Substance: ACETAMINOPHEN
     Indication: PRODUCT USED FOR UNKNOWN INDICATION
     Dosage: 4 TIMES A DAY
     Route: 048
  11. CLONIDINE MYLAN [Interacting]
     Active Substance: CLONIDINE
     Dosage: 0.3 MILLIGRAM, QD
     Route: 062
  12. FERROUS SULFATE. [Concomitant]
     Active Substance: FERROUS SULFATE
     Indication: PRODUCT USED FOR UNKNOWN INDICATION
     Dosage: 650 MILLIGRAM, TID
     Route: 048
  13. HEPARIN [Concomitant]
     Active Substance: HEPARIN SODIUM
     Indication: PRODUCT USED FOR UNKNOWN INDICATION
     Dosage: 5000 INTERNATIONAL UNIT, TID
     Route: 058
  14. ZIPRASIDONE MYLAN [Interacting]
     Active Substance: ZIPRASIDONE
     Dosage: 100 UNK
  15. AMLODIPINE MYLAN [Interacting]
     Active Substance: AMLODIPINE BESYLATE
     Dosage: 10 MILLIGRAM, QD
     Route: 048
  16. CARVEDILOL MYLAN [Interacting]
     Active Substance: CARVEDILOL
     Dosage: 25 MILLIGRAM, BID
     Route: 048
  17. LORAZEPAM MYLAN [Interacting]
     Active Substance: LORAZEPAM
     Dosage: 1 MILLIGRAM, TID
     Route: 048
  18. BRIMONIDINE [Concomitant]
     Active Substance: BRIMONIDINE TARTRATE
     Indication: PRODUCT USED FOR UNKNOWN INDICATION
     Dosage: 0.15 PERCENT, QD
     Route: 047
  19. VALPROIC ACID. [Suspect]
     Active Substance: VALPROIC ACID
     Indication: SCHIZOAFFECTIVE DISORDER
     Dosage: NIGHTLY
     Route: 048
  20. CLOZAPINE MYLAN [Interacting]
     Active Substance: CLOZAPINE
     Dosage: TITRATED UP TO 25MG TWICE DAILY AFTER SIX DOSES, THEN UP TO 50MG TWICE DAILY AFTER THREE DOSES
  21. CLOZAPINE MYLAN [Interacting]
     Active Substance: CLOZAPINE
     Dosage: 25 MILLIGRAM, BID (SIX DOSAGE)
  22. OLANZAPINE MYLAN [Suspect]
     Active Substance: OLANZAPINE
     Dosage: CONTINUED FOR 2 WEEKS
     Route: 065
  23. ISOSORBIDE DINITRATE. [Concomitant]
     Active Substance: ISOSORBIDE DINITRATE
     Indication: HYPERTENSION
     Dosage: 60 MILLIGRAM, BID
     Route: 048
  24. ASPIRIN                            /00002701/ [Concomitant]
     Active Substance: ASPIRIN
     Indication: PRODUCT USED FOR UNKNOWN INDICATION
     Dosage: 81 MILLIGRAM, QD
  25. HYDRALAZINE [Interacting]
     Active Substance: HYDRALAZINE HYDROCHLORIDE
     Dosage: 100 MILLIGRAM, TID
     Route: 048

REACTIONS (8)
  - Drug interaction [Unknown]
  - Tachypnoea [Unknown]
  - Hypothermia [Unknown]
  - Hypoxia [Unknown]
  - Somnolence [Unknown]
  - Drug ineffective [Unknown]
  - Bradycardia [Unknown]
  - Confusional state [Unknown]
